FAERS Safety Report 21952617 (Version 1)
Quarter: 2023Q1

REPORT INFORMATION
  Report Type: Report from Study
  Country: US (occurrence: US)
  Receive Date: 20230203
  Receipt Date: 20230203
  Transmission Date: 20230417
  Serious: Yes (Hospitalization)
  Sender: FDA-Public Use
  Company Number: US-EXELIXIS-CABO-22050216

PATIENT
  Age: 79 Year
  Sex: Male

DRUGS (6)
  1. CABOMETYX [Suspect]
     Active Substance: CABOZANTINIB S-MALATE
     Indication: Prostate cancer
     Dosage: 20 MG, QD
     Route: 048
     Dates: start: 202202
  2. CABOMETYX [Suspect]
     Active Substance: CABOZANTINIB S-MALATE
     Dosage: 40 MG, QD
     Route: 048
     Dates: start: 20220413, end: 20220423
  3. CABOMETYX [Suspect]
     Active Substance: CABOZANTINIB S-MALATE
     Dosage: 20 MG, QD (ONE PILL PER DAY)
     Route: 048
     Dates: start: 20220427
  4. CABOMETYX [Suspect]
     Active Substance: CABOZANTINIB S-MALATE
     Dosage: 40 MG, QD (2 PILLS PER DAY )
     Route: 048
     Dates: start: 20220504
  5. CABOMETYX [Suspect]
     Active Substance: CABOZANTINIB S-MALATE
     Dosage: 20 MG - TAKE 1 TABLET BY MOUTH EVERY OTHER DAY ALTERNATING WITH 2 TABLETS BY MOUTH EVERY OTHER DAY
     Route: 048
  6. TECENTRIQ [Concomitant]
     Active Substance: ATEZOLIZUMAB
     Indication: Prostate cancer
     Dosage: UNK

REACTIONS (6)
  - Fatigue [Unknown]
  - Joint stiffness [Not Recovered/Not Resolved]
  - Decreased appetite [Unknown]
  - Rash erythematous [Recovered/Resolved]
  - Diarrhoea [Unknown]
  - Off label use [Unknown]

NARRATIVE: CASE EVENT DATE: 20220307
